FAERS Safety Report 8476001-3 (Version None)
Quarter: 2012Q2

REPORT INFORMATION
  Report Type: 
  Country: None (occurrence: None)
  Receive Date: 20120628
  Receipt Date: 20120615
  Transmission Date: 20120825
  Serious: No
  Sender: FDA-Public Use
  Company Number: US-ASTRAZENECA-2012SE40569

PATIENT
  Age: 56 Year
  Sex: Female

DRUGS (3)
  1. NEXIUM [Suspect]
     Route: 048
  2. SEROQUEL [Suspect]
     Route: 048
  3. SEROQUEL [Suspect]
     Route: 048

REACTIONS (18)
  - INFERIORITY COMPLEX [None]
  - MEMORY IMPAIRMENT [None]
  - HEADACHE [None]
  - ANXIETY [None]
  - HEART RATE IRREGULAR [None]
  - INSOMNIA [None]
  - PSYCHIATRIC SYMPTOM [None]
  - CIRCUMSTANCE OR INFORMATION CAPABLE OF LEADING TO MEDICATION ERROR [None]
  - TACHYPHRENIA [None]
  - STRESS [None]
  - ASTHENIA [None]
  - APPETITE DISORDER [None]
  - OBSESSIVE THOUGHTS [None]
  - DISTURBANCE IN ATTENTION [None]
  - NERVOUSNESS [None]
  - INAPPROPRIATE AFFECT [None]
  - FEELING ABNORMAL [None]
  - ADVERSE EVENT [None]
